FAERS Safety Report 14876243 (Version 2)
Quarter: 2018Q3

REPORT INFORMATION
  Report Type: Spontaneous
  Country: US (occurrence: US)
  Receive Date: 20180510
  Receipt Date: 20180914
  Transmission Date: 20181010
  Serious: Yes (Other)
  Sender: FDA-Public Use
  Company Number: US-ASTRAZENECA-2018SE57751

PATIENT
  Age: 21819 Day
  Sex: Male

DRUGS (63)
  1. LORAZEPAM. [Concomitant]
     Active Substance: LORAZEPAM
     Dates: start: 20090903
  2. COZAAR [Concomitant]
     Active Substance: LOSARTAN POTASSIUM
     Dates: start: 20070517
  3. METOPROLOL SUCCINATE. [Concomitant]
     Active Substance: METOPROLOL SUCCINATE
     Dates: start: 20111201
  4. CARVEDILOL. [Concomitant]
     Active Substance: CARVEDILOL
     Indication: CARDIAC DISORDER
     Dosage: 10 YEARS
     Dates: start: 20161209
  5. IBUPROFEN. [Concomitant]
     Active Substance: IBUPROFEN
     Dates: start: 20061121
  6. PENICILLIN VK [Concomitant]
     Active Substance: PENICILLIN V POTASSIUM
     Dates: start: 20070912
  7. CLINDAMYCIN. [Concomitant]
     Active Substance: CLINDAMYCIN
     Dates: start: 20070716
  8. CEPHALEXIN. [Concomitant]
     Active Substance: CEPHALEXIN
     Dates: start: 20070411
  9. METOPROLOL TARTRATE. [Concomitant]
     Active Substance: METOPROLOL TARTRATE
     Dates: start: 20101231
  10. VALACICLOVIR HYDROCHLORIDE [Concomitant]
     Active Substance: VALACYCLOVIR HYDROCHLORIDE
     Dates: start: 20110201
  11. FLUVIRIN NOS [Concomitant]
     Active Substance: INFLUENZA VIRUS VACCINE
     Dates: start: 20111010
  12. METFORMIN HYDROCHLORIDE. [Concomitant]
     Active Substance: METFORMIN HYDROCHLORIDE
     Dates: start: 20131023
  13. SPIRONOLACTONE. [Concomitant]
     Active Substance: SPIRONOLACTONE
     Dates: start: 20140922
  14. NEXIUM [Suspect]
     Active Substance: ESOMEPRAZOLE MAGNESIUM
     Indication: GASTROOESOPHAGEAL REFLUX DISEASE
     Route: 048
     Dates: start: 2001
  15. NEXIUM [Suspect]
     Active Substance: ESOMEPRAZOLE MAGNESIUM
     Indication: GASTROOESOPHAGEAL REFLUX DISEASE
     Dosage: ESOMEPRAZOLE MAGNESIUM?TAKE ONE CAPSULE BY MOUTH EVERY DAY
     Route: 048
     Dates: start: 20150319
  16. ATORVASTATIN [Concomitant]
     Active Substance: ATORVASTATIN
     Indication: CARDIAC DISORDER
     Dosage: 3 YEARS
     Dates: start: 20151203
  17. MELOXICAM. [Concomitant]
     Active Substance: MELOXICAM
     Indication: PAIN
     Dosage: 4 YEARS
     Dates: start: 20101108
  18. CIPRODEX [Concomitant]
     Active Substance: CIPROFLOXACIN HYDROCHLORIDE\DEXAMETHASONE
     Dates: start: 2009
  19. IBUPROFEN. [Concomitant]
     Active Substance: IBUPROFEN
     Dates: start: 2006
  20. NIACIN. [Concomitant]
     Active Substance: NIACIN
     Indication: RENAL DISORDER
     Dosage: DAILY
  21. PROPOXYPHENE?N/APAP [Concomitant]
     Dates: start: 20060605
  22. ZYMAR [Concomitant]
     Active Substance: GATIFLOXACIN
     Route: 047
     Dates: start: 20071219
  23. HYDROMORPHONE [Concomitant]
     Active Substance: HYDROMORPHONE
     Dates: start: 20100504
  24. SODIUM BICARBONATE. [Concomitant]
     Active Substance: SODIUM BICARBONATE
     Dates: start: 20130416
  25. AFLURIA NOS [Concomitant]
     Active Substance: INFLUENZA VIRUS VACCINE TRIVALENT TYPE A+B AFLURIA
     Dates: start: 20131012
  26. PRILOSEC [Suspect]
     Active Substance: OMEPRAZOLE MAGNESIUM
     Indication: GASTROOESOPHAGEAL REFLUX DISEASE
     Route: 048
     Dates: start: 1983, end: 2001
  27. TESTOSTERONE. [Concomitant]
     Active Substance: TESTOSTERONE
     Indication: ROUTINE HEALTH MAINTENANCE
     Dosage: 5 YEARS?TESTOST CYP INJ 100MG/ML
     Dates: start: 20150514
  28. CYCLOBENZAPRINE. [Concomitant]
     Active Substance: CYCLOBENZAPRINE
     Dates: start: 2014
  29. TUMS [Concomitant]
     Active Substance: CALCIUM CARBONATE
     Dosage: OTC?WHEN NEEDED
     Dates: start: 1976
  30. BACTROBAN [Concomitant]
     Active Substance: MUPIROCIN\MUPIROCIN CALCIUM
     Dates: start: 20111203
  31. LIDOCAINE. [Concomitant]
     Active Substance: LIDOCAINE
     Dates: start: 20140306
  32. KETOCONAZOLE. [Concomitant]
     Active Substance: KETOCONAZOLE
     Dates: start: 20160725
  33. CRESTOR [Concomitant]
     Active Substance: ROSUVASTATIN CALCIUM
     Indication: CARDIAC DISORDER
     Dosage: 2003/2014?ONE TAB PO QD
     Dates: start: 20090818
  34. CYCLOBENZAPRINE. [Concomitant]
     Active Substance: CYCLOBENZAPRINE
     Dates: start: 20140527
  35. PENICILLIN VK [Concomitant]
     Active Substance: PENICILLIN V POTASSIUM
     Dates: start: 2007
  36. VITAMIN D [Concomitant]
     Active Substance: CHOLECALCIFEROL
     Indication: RENAL DISORDER
     Dosage: DAILY
  37. VITAMIN C [Concomitant]
     Active Substance: ASCORBIC ACID
     Dosage: DAILY
  38. FOLBIC [Concomitant]
     Active Substance: CYANOCOBALAMIN\FOLIC ACID\PYRIDOXINE
     Dates: start: 20101209
  39. TRAMADOL HYDROCHLORIDE. [Concomitant]
     Active Substance: TRAMADOL HYDROCHLORIDE
     Dates: start: 20140305
  40. DIPHENOXYLATE?ATROPINE [Concomitant]
     Active Substance: ATROPINE\DIPHENOXYLATE
     Dates: start: 20141229
  41. PRILOSEC [Suspect]
     Active Substance: OMEPRAZOLE MAGNESIUM
     Indication: GASTROOESOPHAGEAL REFLUX DISEASE
     Route: 048
     Dates: start: 1990
  42. CIPRODEX [Concomitant]
     Active Substance: CIPROFLOXACIN HYDROCHLORIDE\DEXAMETHASONE
     Route: 047
     Dates: start: 20091112
  43. HYDROCODONE BITARTRATE AND ACETAMINOPHEN [Concomitant]
     Active Substance: ACETAMINOPHEN\HYDROCODONE BITARTRATE
     Dates: start: 20080721
  44. ZETIA [Concomitant]
     Active Substance: EZETIMIBE
     Dates: start: 20090818
  45. NITROSTAT [Concomitant]
     Active Substance: NITROGLYCERIN
     Route: 060
     Dates: start: 20120501
  46. METHYLPREDNISOLONE. [Concomitant]
     Active Substance: METHYLPREDNISOLONE
     Dates: start: 20140424
  47. KETOCONAZOLE. [Concomitant]
     Active Substance: KETOCONAZOLE
     Dates: start: 20140623
  48. NEXIUM [Suspect]
     Active Substance: ESOMEPRAZOLE MAGNESIUM
     Indication: GASTROOESOPHAGEAL REFLUX DISEASE
     Dosage: 30 YEARS
     Route: 048
     Dates: start: 1990
  49. NEXIUM [Suspect]
     Active Substance: ESOMEPRAZOLE MAGNESIUM
     Indication: GASTROOESOPHAGEAL REFLUX DISEASE
     Route: 048
     Dates: start: 20090818
  50. LOSARTAN. [Concomitant]
     Active Substance: LOSARTAN
     Indication: CARDIAC DISORDER
     Dosage: 10 YEARS?POTASSIUM
     Dates: start: 20101231
  51. HYDROCODONE [Concomitant]
     Active Substance: HYDROCODONE
     Dates: start: 2014
  52. LORAZEPAM. [Concomitant]
     Active Substance: LORAZEPAM
     Dates: start: 2009
  53. ASPIRIN. [Concomitant]
     Active Substance: ASPIRIN
     Indication: CARDIAC DISORDER
     Dosage: LOW DOSE?DAILY?2 TABS PO QD
     Dates: start: 20090818
  54. NEVANAC [Concomitant]
     Active Substance: NEPAFENAC
     Route: 047
     Dates: start: 20071219
  55. AMLODIPINE BESYLATE. [Concomitant]
     Active Substance: AMLODIPINE BESYLATE
     Dates: start: 20101001
  56. PROMETHAZINE [Concomitant]
     Active Substance: PROMETHAZINE\PROMETHAZINE HYDROCHLORIDE
     Dates: start: 20140410
  57. CICLOPIROX. [Concomitant]
     Active Substance: CICLOPIROX
     Dates: start: 20140623
  58. FLUZONE [Concomitant]
     Active Substance: INFLUENZA A VIRUS A/CALIFORNIA/7/2009 X-179A (H1N1) ANTIGEN (FORMALDEHYDE INACTIVATED)\INFLUENZA A VIRUS A/VICTORIA/210/2009 X-187 (H3N2) ANTIGEN (FORMALDEHYDE INACTIVATED)\INFLUENZA B VIRUS B/BRISBANE/60/2008 ANTIGEN (FORMALDEHYDE INACTIVATED)
     Dates: start: 20141003
  59. OXYCODONE?ACETAMINOPHEN [Concomitant]
     Active Substance: ACETAMINOPHEN\OXYCODONE HYDROCHLORIDE
     Dates: start: 20170725
  60. LISINOPRIL. [Concomitant]
     Active Substance: LISINOPRIL
     Indication: CARDIAC DISORDER
     Dosage: 10 YEARS
  61. AMOXICILLIN. [Concomitant]
     Active Substance: AMOXICILLIN
     Dates: start: 20061121
  62. CIPROFLOXACIN HYDROCHLORIDE. [Concomitant]
     Active Substance: CIPROFLOXACIN HYDROCHLORIDE
     Dates: start: 20120119
  63. AZITHROMYCIN ANHYDROUS. [Concomitant]
     Active Substance: AZITHROMYCIN ANHYDROUS
     Dates: start: 20150514

REACTIONS (5)
  - Nephrogenic anaemia [Unknown]
  - Nephropathy [Not Recovered/Not Resolved]
  - Tubulointerstitial nephritis [Not Recovered/Not Resolved]
  - Renal failure [Unknown]
  - Chronic kidney disease [Not Recovered/Not Resolved]

NARRATIVE: CASE EVENT DATE: 20070809
